FAERS Safety Report 22314026 (Version 1)
Quarter: 2023Q2

REPORT INFORMATION
  Report Type: Spontaneous
  Country: GR (occurrence: GR)
  Receive Date: 20230512
  Receipt Date: 20230512
  Transmission Date: 20230721
  Serious: Yes (Life-Threatening, Hospitalization)
  Sender: FDA-Public Use
  Company Number: GR-SERVIER-S23003556

PATIENT

DRUGS (6)
  1. ONCASPAR [Suspect]
     Active Substance: PEGASPARGASE
     Indication: Acute lymphocytic leukaemia
     Dosage: 2825 IU, ONE DOSE
     Route: 042
     Dates: start: 20230210, end: 20230210
  2. CYTARABINE [Concomitant]
     Active Substance: CYTARABINE
     Indication: Acute lymphocytic leukaemia
     Dosage: 85 MG
     Route: 065
     Dates: start: 20230123, end: 20230201
  3. METHOTREXATE [Concomitant]
     Active Substance: METHOTREXATE
     Indication: Acute lymphocytic leukaemia
     Dosage: 12 MG
     Route: 065
     Dates: start: 20230202, end: 20230202
  4. VINCRISTINE SULFATE [Concomitant]
     Active Substance: VINCRISTINE SULFATE
     Indication: Acute lymphocytic leukaemia
     Dosage: 1.7 MG
     Route: 065
     Dates: start: 20230209, end: 20230216
  5. DEXAMETHASONE [Concomitant]
     Active Substance: DEXAMETHASONE
     Indication: Acute lymphocytic leukaemia
     Dosage: 4 MG, TID
     Route: 065
     Dates: start: 20230209, end: 20230215
  6. MERCAPTOPURINE [Concomitant]
     Active Substance: MERCAPTOPURINE
     Indication: Acute lymphocytic leukaemia
     Dosage: 3.4 ML
     Route: 065
     Dates: start: 20230121, end: 20230203

REACTIONS (2)
  - Pulmonary embolism [Recovered/Resolved]
  - Peripheral vein thrombus extension [Recovered/Resolved]

NARRATIVE: CASE EVENT DATE: 20230214
